FAERS Safety Report 5832427-5 (Version None)
Quarter: 2008Q3

REPORT INFORMATION
  Report Type: 
  Country: None (occurrence: None)
  Receive Date: 20080730
  Receipt Date: 20080721
  Transmission Date: 20090109
  Serious: Yes (Hospitalization)
  Sender: FDA-Public Use
  Company Number: GXKR2008GB06885

PATIENT
  Age: 72 Year
  Sex: Female

DRUGS (5)
  1. VERAPAMIL [Suspect]
     Dosage: 40 MG, TID, ORAL
     Route: 048
     Dates: start: 20080619, end: 20080703
  2. THEOPHYLLINE [Suspect]
     Indication: CHRONIC OBSTRUCTIVE PULMONARY DISEASE
     Dosage: 200 MG, BID, ORAL
     Route: 048
     Dates: start: 20080619, end: 20080703
  3. ATORVASTATIN CALCIUM [Concomitant]
  4. CARBOCISTEINE (CARBOCISTEINE) [Concomitant]
  5. OMEPRAZOLE [Concomitant]

REACTIONS (2)
  - BLOOD GLUCOSE ABNORMAL [None]
  - HYPOKALAEMIA [None]
